FAERS Safety Report 5103564-8 (Version None)
Quarter: 2006Q3

REPORT INFORMATION
  Report Type: 
  Country: None (occurrence: None)
  Receive Date: 20060913
  Receipt Date: 20060911
  Transmission Date: 20061208
  Serious: Yes (Life-Threatening, Hospitalization, Other)
  Sender: FDA-Public Use
  Company Number: CA-BAYER-200614014GDS

PATIENT
  Sex: Female

DRUGS (1)
  1. APROTININ [Suspect]
     Indication: CORONARY ARTERY BYPASS
     Route: 042

REACTIONS (2)
  - CARDIAC DISORDER [None]
  - CORONARY ARTERY OCCLUSION [None]
